FAERS Safety Report 17009217 (Version 2)
Quarter: 2019Q4

REPORT INFORMATION
  Report Type: Spontaneous
  Country: AU (occurrence: AU)
  Receive Date: 20191108
  Receipt Date: 20191112
  Transmission Date: 20200122
  Serious: Yes (Hospitalization, Other)
  Sender: FDA-Public Use
  Company Number: AU-PFIZER INC-2019478240

PATIENT
  Age: 73 Year
  Sex: Female

DRUGS (4)
  1. ACETYLCYSTEINE. [Suspect]
     Active Substance: ACETYLCYSTEINE
     Dosage: 400 MG, UNK
     Route: 042
  2. ACETYLCYSTEINE. [Suspect]
     Active Substance: ACETYLCYSTEINE
     Dosage: 800 MG, UNK
     Route: 042
  3. ACETYLCYSTEINE. [Suspect]
     Active Substance: ACETYLCYSTEINE
     Dosage: 1200 MG, UNK
     Route: 042
  4. ACETYLCYSTEINE. [Suspect]
     Active Substance: ACETYLCYSTEINE
     Indication: TOXICITY TO VARIOUS AGENTS
     Dosage: UNK (10% OF THE NAC DOSE)
     Route: 042

REACTIONS (3)
  - Underdose [Recovered/Resolved]
  - Hepatotoxicity [Recovered/Resolved]
  - Product prescribing error [Recovered/Resolved]
